FAERS Safety Report 9747652 (Version 1)
Quarter: 2013Q4

REPORT INFORMATION
  Report Type: Spontaneous
  Country: DE (occurrence: None)
  Receive Date: 20131206
  Receipt Date: 20131206
  Transmission Date: 20140711
  Serious: No
  Sender: FDA-Public Use
  Company Number: DE-2013-3924

PATIENT
  Age: 57 Year
  Sex: Female

DRUGS (3)
  1. NAVELBINE [Suspect]
     Indication: BREAST CANCER
     Dosage: 40 MG/M2, CYCLICAL (1/21)?
     Route: 042
     Dates: start: 20130508, end: 20130515
  2. HERCEPTIN [Suspect]
     Indication: BREAST CANCER
     Dosage: 480 MG, CYCLICAL (1/21) INTRAVENOUS?
     Route: 042
     Dates: start: 20130508
  3. PERTUZUMAB [Suspect]
     Indication: BREAST CANCER
     Dosage: 840 MG, CYCLICAL (1/21) INTRAVENOUS
     Route: 042
     Dates: start: 20130507

REACTIONS (3)
  - Blood creatine phosphokinase increased [None]
  - Metastases to lymph nodes [None]
  - Metastases to lung [None]
